FAERS Safety Report 6839143-1 (Version None)
Quarter: 2010Q3

REPORT INFORMATION
  Report Type: 
  Country: None (occurrence: None)
  Receive Date: 20100714
  Receipt Date: 20100630
  Transmission Date: 20110219
  Serious: Yes (Other)
  Sender: FDA-Public Use
  Company Number: US-CELGENEUS-163-21880-10070243

PATIENT
  Sex: Female

DRUGS (1)
  1. REVLIMID [Suspect]
     Indication: MULTIPLE MYELOMA
     Route: 048
     Dates: start: 20070831

REACTIONS (4)
  - HAEMOGLOBIN DECREASED [None]
  - HEADACHE [None]
  - NEUROPATHY PERIPHERAL [None]
  - PACHYMENINGITIS [None]
